FAERS Safety Report 5165636-1 (Version None)
Quarter: 2006Q4

REPORT INFORMATION
  Report Type: 
  Country: None (occurrence: None)
  Receive Date: 20061206
  Receipt Date: 20061124
  Transmission Date: 20070319
  Serious: Yes (Hospitalization)
  Sender: FDA-Public Use
  Company Number: FR-GILEAD-2006-0010712

PATIENT
  Age: 37 Year
  Sex: Male
  Weight: 57 kg

DRUGS (4)
  1. EMTRIVA [Suspect]
     Indication: HIV INFECTION
     Route: 048
     Dates: end: 20060419
  2. VIREAD [Suspect]
     Indication: HIV INFECTION
     Route: 048
     Dates: end: 20060419
  3. NORVIR [Suspect]
     Indication: HIV INFECTION
     Route: 048
     Dates: end: 20060419
  4. TELZIR [Suspect]
     Indication: HIV INFECTION
     Route: 048
     Dates: end: 20060419

REACTIONS (1)
  - PANCREATITIS [None]
